FAERS Safety Report 11325248 (Version 1)
Quarter: 2015Q3

REPORT INFORMATION
  Report Type: Spontaneous
  Country: FR (occurrence: FR)
  Receive Date: 20150730
  Receipt Date: 20150730
  Transmission Date: 20151125
  Serious: Yes (Other)
  Sender: FDA-Public Use
  Company Number: FR-GILEAD-2015-0164275

PATIENT
  Age: 57 Year
  Sex: Male

DRUGS (10)
  1. KARDEGIC [Concomitant]
     Active Substance: ASPIRIN LYSINE
  2. SOVALDI [Suspect]
     Active Substance: SOFOSBUVIR
     Indication: HEPATITIS C
     Dosage: 400 MG, UNK
     Route: 048
     Dates: start: 20141021, end: 20150407
  3. DACLATASVIR. [Suspect]
     Active Substance: DACLATASVIR
     Indication: HEPATITIS C
     Dosage: 60 MG, UNK
     Route: 048
     Dates: start: 20141021, end: 20150407
  4. PIPERACILIN/TAZOBACTAM [Suspect]
     Active Substance: PIPERACILLIN SODIUM\TAZOBACTAM SODIUM
     Indication: LIVER ABSCESS
     Dosage: 4 G, ON 8 HOURS
     Route: 042
     Dates: start: 20150313, end: 20150424
  5. INEXIUM                            /01479302/ [Concomitant]
     Active Substance: ESOMEPRAZOLE MAGNESIUM
  6. ATENOLOL. [Concomitant]
     Active Substance: ATENOLOL
  7. CIPROFLOXACIN. [Suspect]
     Active Substance: CIPROFLOXACIN
     Indication: LIVER ABSCESS
     Dosage: 500 MG, BID
     Route: 048
     Dates: start: 20150313, end: 20150424
  8. NEORAL [Concomitant]
     Active Substance: CYCLOSPORINE
  9. AMLOR [Concomitant]
     Active Substance: AMLODIPINE BESYLATE
  10. MYFORTIC [Concomitant]
     Active Substance: MYCOPHENOLATE SODIUM

REACTIONS (6)
  - Dermatomyositis [Recovering/Resolving]
  - Pain in extremity [Recovering/Resolving]
  - Rash maculo-papular [Recovering/Resolving]
  - Myalgia [Recovered/Resolved with Sequelae]
  - Oedema peripheral [Recovering/Resolving]
  - Oedema peripheral [Recovering/Resolving]

NARRATIVE: CASE EVENT DATE: 20150420
